FAERS Safety Report 13705665 (Version 2)
Quarter: 2017Q3

REPORT INFORMATION
  Report Type: Spontaneous
  Country: PL (occurrence: PL)
  Receive Date: 20170630
  Receipt Date: 20170728
  Transmission Date: 20171127
  Serious: Yes (Death, Hospitalization)
  Sender: FDA-Public Use
  Company Number: PL-ACTELION-A-CH2017-155641

PATIENT
  Age: 68 Year
  Sex: Female
  Weight: 85 kg

DRUGS (2)
  1. REVATIO [Concomitant]
     Active Substance: SILDENAFIL CITRATE
     Indication: PULMONARY ARTERIAL HYPERTENSION
     Dosage: 20 MG, TID
     Dates: start: 201507
  2. VELETRI [Suspect]
     Active Substance: EPOPROSTENOL
     Indication: PULMONARY ARTERIAL HYPERTENSION
     Dosage: 1.5 MG, UNK
     Route: 042
     Dates: start: 201606, end: 20170617

REACTIONS (9)
  - Pulmonary arterial hypertension [Fatal]
  - Cardiac arrest [Fatal]
  - Glomerular filtration rate decreased [Fatal]
  - N-terminal prohormone brain natriuretic peptide increased [Fatal]
  - Condition aggravated [Fatal]
  - Right ventricular failure [Fatal]
  - Loss of consciousness [Fatal]
  - Cardiovascular deconditioning [Fatal]
  - Ascites [Fatal]
